FAERS Safety Report 10253448 (Version 2)
Quarter: 2014Q2

REPORT INFORMATION
  Report Type: Spontaneous
  Country: JP (occurrence: JP)
  Receive Date: 20140623
  Receipt Date: 20140623
  Transmission Date: 20141212
  Serious: Yes (Death)
  Sender: FDA-Public Use
  Company Number: JP-ABBVIE-14K-087-1244513-00

PATIENT
  Age: 3 Month
  Sex: Male

DRUGS (6)
  1. SYNAGIS [Suspect]
     Indication: ANTIVIRAL PROPHYLAXIS
     Route: 030
     Dates: start: 20121228, end: 20121228
  2. SYNAGIS [Suspect]
     Indication: HEART DISEASE CONGENITAL
  3. FUROSEMIDE [Concomitant]
     Indication: POSTOPERATIVE CARE
     Route: 048
     Dates: start: 20121112, end: 20130124
  4. SPIRONOLACTONE [Concomitant]
     Indication: POSTOPERATIVE CARE
     Route: 048
     Dates: start: 20121112, end: 20130124
  5. ASPIRIN [Concomitant]
     Indication: POSTOPERATIVE CARE
     Route: 048
     Dates: start: 20121112, end: 20130124
  6. DIPYRIDAMOLE [Concomitant]
     Indication: POSTOPERATIVE CARE
     Route: 048
     Dates: start: 20121112, end: 20130124

REACTIONS (1)
  - Viral myocarditis [Fatal]
